FAERS Safety Report 6333027-3 (Version None)
Quarter: 2009Q3

REPORT INFORMATION
  Report Type: 
  Country: None (occurrence: None)
  Receive Date: 20090828
  Receipt Date: 20090819
  Transmission Date: 20100115
  Serious: Yes (Other)
  Sender: FDA-Public Use
  Company Number: US-AMGEN-QUU360973

PATIENT
  Sex: Female

DRUGS (2)
  1. ENBREL [Suspect]
     Indication: PSORIASIS
     Route: 058
     Dates: start: 20041201
  2. MEDROL [Concomitant]

REACTIONS (5)
  - PSORIASIS [None]
  - PSYCHOTIC DISORDER [None]
  - RASH [None]
  - SWELLING FACE [None]
  - SWOLLEN TONGUE [None]
